FAERS Safety Report 16893969 (Version 1)
Quarter: 2019Q4

REPORT INFORMATION
  Report Type: Report from Study
  Country: JP (occurrence: JP)
  Receive Date: 20191008
  Receipt Date: 20191008
  Transmission Date: 20200122
  Serious: Yes (Other)
  Sender: FDA-Public Use
  Company Number: JP-EISAI MEDICAL RESEARCH-EC-2019-063174

PATIENT
  Age: 29 Year
  Sex: Male
  Weight: 73 kg

DRUGS (6)
  1. FYCOMPA [Suspect]
     Active Substance: PERAMPANEL
     Dosage: DOSE DECREASED (UNKNOWN DOSAGE)
     Route: 048
     Dates: start: 20180917, end: 2018
  2. LAMICTAL [Concomitant]
     Active Substance: LAMOTRIGINE
  3. MYSTAN [Concomitant]
     Active Substance: CLOBAZAM
  4. FYCOMPA [Suspect]
     Active Substance: PERAMPANEL
     Route: 048
     Dates: start: 20180502, end: 20180916
  5. PARIET [Concomitant]
     Active Substance: RABEPRAZOLE SODIUM
     Route: 048
  6. FYCOMPA [Suspect]
     Active Substance: PERAMPANEL
     Indication: EPILEPSY
     Route: 048
     Dates: start: 20180227, end: 20180501

REACTIONS (1)
  - Dizziness [Recovering/Resolving]

NARRATIVE: CASE EVENT DATE: 20180801
